FAERS Safety Report 7711978-2 (Version None)
Quarter: 2011Q3

REPORT INFORMATION
  Report Type: 
  Country: None (occurrence: None)
  Receive Date: 20110826
  Receipt Date: 20110818
  Transmission Date: 20111222
  Serious: Yes (Hospitalization, Other)
  Sender: FDA-Public Use
  Company Number: JP-JNJFOC-20110705815

PATIENT
  Sex: Female
  Weight: 104 kg

DRUGS (10)
  1. INVEGA [Suspect]
     Route: 048
     Dates: start: 20110127
  2. ZYPREXA [Concomitant]
     Indication: SCHIZOPHRENIA
     Route: 048
     Dates: start: 20080227, end: 20080304
  3. EVAMYL [Concomitant]
     Indication: INITIAL INSOMNIA
     Route: 048
     Dates: start: 20101009
  4. ABILIFY [Concomitant]
     Indication: SCHIZOPHRENIA
     Route: 048
     Dates: start: 20071024, end: 20080227
  5. RISPERDAL [Suspect]
     Route: 048
     Dates: start: 20101005, end: 20110127
  6. EPADEL S [Concomitant]
     Indication: DYSLIPIDAEMIA
     Route: 048
     Dates: start: 20110707
  7. RISPERDAL [Suspect]
     Indication: SCHIZOPHRENIA
     Route: 048
     Dates: start: 20040310, end: 20080205
  8. EVAMYL [Concomitant]
     Indication: SCHIZOPHRENIA
     Route: 048
     Dates: start: 20101009
  9. RISPERDAL [Suspect]
     Route: 048
     Dates: start: 20080304, end: 20100113
  10. INVEGA [Suspect]
     Indication: SCHIZOPHRENIA
     Route: 048
     Dates: start: 20110120, end: 20110126

REACTIONS (2)
  - BREAST CANCER [None]
  - HYPERPROLACTINAEMIA [None]
